FAERS Safety Report 6978216-X (Version None)
Quarter: 2010Q3

REPORT INFORMATION
  Report Type: 
  Country: None (occurrence: None)
  Receive Date: 20100913
  Receipt Date: 20100830
  Transmission Date: 20110219
  Serious: Yes (Hospitalization)
  Sender: FDA-Public Use
  Company Number: FR-ELI_LILLY_AND_COMPANY-FR201008004525

PATIENT
  Sex: Male

DRUGS (1)
  1. ZYPADHERA [Suspect]
     Dosage: 300 MG, EVERY 15 DAYS
     Route: 030
     Dates: start: 20100621

REACTIONS (7)
  - AGGRESSION [None]
  - ALTERED STATE OF CONSCIOUSNESS [None]
  - BLOOD PRESSURE DECREASED [None]
  - BODY TEMPERATURE DECREASED [None]
  - BRADYPHRENIA [None]
  - DRUG LEVEL ABOVE THERAPEUTIC [None]
  - SOMNOLENCE [None]
